FAERS Safety Report 5289441-0 (Version None)
Quarter: 2007Q2

REPORT INFORMATION
  Report Type: 
  Country: None (occurrence: None)
  Receive Date: 20070406
  Receipt Date: 20070403
  Transmission Date: 20071010
  Serious: Yes (Other)
  Sender: FDA-Public Use
  Company Number: US-SANOFI-SYNTHELABO-A03200700487

PATIENT
  Sex: Female

DRUGS (5)
  1. AMBIEN CR [Suspect]
     Indication: INSOMNIA
     Route: 048
     Dates: start: 20061206
  2. IMITREX [Concomitant]
     Route: 048
  3. MAXALT [Concomitant]
     Route: 065
  4. CRYSTALLINE VIT B12 INJ [Concomitant]
     Route: 065
  5. LEXAPRO [Concomitant]
     Route: 048

REACTIONS (4)
  - CEREBROVASCULAR ACCIDENT [None]
  - DEPRESSED LEVEL OF CONSCIOUSNESS [None]
  - DYSARTHRIA [None]
  - GAIT DISTURBANCE [None]
